FAERS Safety Report 8816866 (Version 1)
Quarter: 2012Q4

REPORT INFORMATION
  Report Type: Spontaneous
  Country: US (occurrence: None)
  Receive Date: 20121002
  Receipt Date: 20121002
  Transmission Date: 20130627
  Serious: Yes (Other)
  Sender: FDA-Public Use
  Company Number: None

PATIENT
  Age: 50 Year
  Sex: Female

DRUGS (1)
  1. LISINOPRIL [Suspect]
     Route: 048
     Dates: start: 20120903, end: 20120904

REACTIONS (2)
  - Lip swelling [None]
  - Dysphagia [None]
